FAERS Safety Report 4951052-1 (Version None)
Quarter: 2006Q1

REPORT INFORMATION
  Report Type: 
  Country: None (occurrence: None)
  Receive Date: 20060317
  Receipt Date: 20060306
  Transmission Date: 20060701
  Serious: Yes (Hospitalization)
  Sender: FDA-Public Use
  Company Number: FR200602005164

PATIENT
  Age: 40 Year
  Sex: Male

DRUGS (5)
  1. ZYPREXA [Suspect]
     Indication: PSYCHOTIC DISORDER
     Dosage: 5 MG, DAILY (1/D), ORAL
     Route: 048
     Dates: start: 20030101, end: 20051230
  2. SEROPRAM /SCH/(CITALOPRAM HYDROBROMIDE) [Concomitant]
  3. URBANYL /FRA/(CLOBAZAM) [Concomitant]
  4. IMOVANE /UNK/(ZOPICLONE) [Concomitant]
  5. LEPTICUR (TROPATEPINE HYDROCHLORIDE) [Concomitant]

REACTIONS (1)
  - SLEEP WALKING [None]
